FAERS Safety Report 19487241 (Version 1)
Quarter: 2021Q3

REPORT INFORMATION
  Report Type: Other
  Country: DE (occurrence: DE)
  Receive Date: 20210702
  Receipt Date: 20210702
  Transmission Date: 20211014
  Serious: Yes (Other)
  Sender: FDA-Public Use
  Company Number: DE-GE HEALTHCARE LIFE SCIENCES-2021CSU003223

PATIENT

DRUGS (27)
  1. MULTIHANCE [Suspect]
     Active Substance: GADOBENATE DIMEGLUMINE
     Indication: PRODUCT USED FOR UNKNOWN INDICATION
     Dosage: UNK
     Route: 065
     Dates: start: 2005
  2. MULTIHANCE [Suspect]
     Active Substance: GADOBENATE DIMEGLUMINE
     Dosage: UNK
     Route: 065
     Dates: start: 2007
  3. DOTAREM [Suspect]
     Active Substance: GADOTERATE MEGLUMINE
     Dosage: UNK
     Route: 065
     Dates: start: 2014
  4. MAGNEVIST [Suspect]
     Active Substance: GADOPENTETATE DIMEGLUMINE
     Dosage: UNK
     Route: 065
     Dates: start: 1999
  5. MAGNEVIST [Suspect]
     Active Substance: GADOPENTETATE DIMEGLUMINE
     Dosage: UNK
     Route: 065
     Dates: start: 2006
  6. MAGNEVIST [Suspect]
     Active Substance: GADOPENTETATE DIMEGLUMINE
     Dosage: UNK
     Route: 065
     Dates: start: 2001
  7. OMNISCAN [Suspect]
     Active Substance: GADODIAMIDE
     Indication: PRODUCT USED FOR UNKNOWN INDICATION
  8. PROHANCE [Suspect]
     Active Substance: GADOTERIDOL
     Indication: PRODUCT USED FOR UNKNOWN INDICATION
     Dosage: UNK
     Route: 065
     Dates: start: 2020
  9. DOTAREM [Suspect]
     Active Substance: GADOTERATE MEGLUMINE
     Dosage: UNK
     Route: 065
     Dates: start: 2018
  10. GADOVIST [Suspect]
     Active Substance: GADOBUTROL
     Dosage: UNK
     Route: 065
     Dates: start: 2011
  11. OMNISCAN [Suspect]
     Active Substance: GADODIAMIDE
     Indication: DIAGNOSTIC PROCEDURE
     Dosage: UNK UNK, SINGLE
     Route: 065
     Dates: start: 2007, end: 2007
  12. DOTAREM [Suspect]
     Active Substance: GADOTERATE MEGLUMINE
     Indication: PRODUCT USED FOR UNKNOWN INDICATION
     Dosage: UNK
     Route: 065
     Dates: start: 2017
  13. MAGNEVIST [Suspect]
     Active Substance: GADOPENTETATE DIMEGLUMINE
     Dosage: UNK
     Route: 065
     Dates: start: 2008
  14. GADOVIST [Suspect]
     Active Substance: GADOBUTROL
     Dosage: UNK
     Route: 065
     Dates: start: 2015
  15. MAGNEVIST [Suspect]
     Active Substance: GADOPENTETATE DIMEGLUMINE
     Dosage: UNK
     Route: 065
     Dates: start: 2002
  16. DOTAREM [Suspect]
     Active Substance: GADOTERATE MEGLUMINE
     Dosage: UNK
     Route: 065
     Dates: start: 2016
  17. GADOVIST [Suspect]
     Active Substance: GADOBUTROL
     Indication: PRODUCT USED FOR UNKNOWN INDICATION
     Dosage: UNK
     Route: 065
     Dates: start: 2017
  18. MULTIHANCE [Suspect]
     Active Substance: GADOBENATE DIMEGLUMINE
     Dosage: UNK
     Route: 065
     Dates: start: 2009
  19. GADOVIST [Suspect]
     Active Substance: GADOBUTROL
     Dosage: UNK
     Route: 065
     Dates: start: 2012
  20. GADOVIST [Suspect]
     Active Substance: GADOBUTROL
     Dosage: UNK
     Route: 065
     Dates: start: 2010
  21. GADOVIST [Suspect]
     Active Substance: GADOBUTROL
     Dosage: UNK
     Dates: start: 2016
  22. GADOVIST [Suspect]
     Active Substance: GADOBUTROL
     Dosage: UNK
     Route: 065
     Dates: start: 2013
  23. PROHANCE [Suspect]
     Active Substance: GADOTERIDOL
     Dosage: UNK
     Route: 065
     Dates: start: 2021
  24. MULTIHANCE [Suspect]
     Active Substance: GADOBENATE DIMEGLUMINE
     Dosage: UNK
     Route: 065
     Dates: start: 2006
  25. MAGNEVIST [Suspect]
     Active Substance: GADOPENTETATE DIMEGLUMINE
     Dosage: UNK
     Route: 065
     Dates: start: 2004
  26. MAGNEVIST [Suspect]
     Active Substance: GADOPENTETATE DIMEGLUMINE
     Dosage: UNK
     Route: 065
     Dates: start: 2003
  27. MAGNEVIST [Suspect]
     Active Substance: GADOPENTETATE DIMEGLUMINE
     Indication: PRODUCT USED FOR UNKNOWN INDICATION
     Dosage: UNK
     Route: 065
     Dates: start: 2005

REACTIONS (12)
  - Paraesthesia [Unknown]
  - Pain [Unknown]
  - Rash [Unknown]
  - Depression [Unknown]
  - Sleep disorder [Unknown]
  - Suicidal ideation [Unknown]
  - Pain in extremity [Unknown]
  - Movement disorder [Unknown]
  - Burning sensation [Unknown]
  - Peripheral swelling [Unknown]
  - Ocular hyperaemia [Unknown]
  - Anxiety [Unknown]
